FAERS Safety Report 7184616-8 (Version None)
Quarter: 2010Q4

REPORT INFORMATION
  Report Type: 
  Country: None (occurrence: None)
  Receive Date: 20101222
  Receipt Date: 20101209
  Transmission Date: 20110411
  Serious: Yes (Hospitalization, Other)
  Sender: FDA-Public Use
  Company Number: US-ELI_LILLY_AND_COMPANY-US201011001627

PATIENT
  Sex: Male
  Weight: 114.29 kg

DRUGS (17)
  1. ALIMTA [Suspect]
     Indication: LUNG CANCER METASTATIC
     Dosage: UNK, UNKNOWN
     Route: 065
     Dates: start: 20101021
  2. ASPIRIN [Concomitant]
     Dosage: 81 MG, DAILY (1/D)
     Route: 048
  3. BYETTA [Concomitant]
     Dosage: 10 UG, 2/D
     Route: 058
  4. NEURONTIN [Concomitant]
     Dosage: 900 MG, 2/D
     Route: 048
  5. ACTOS [Concomitant]
     Dosage: 45 MG, DAILY (1/D)
     Route: 048
  6. ASTELIN [Concomitant]
  7. COMPAZINE [Concomitant]
     Indication: NAUSEA
     Dosage: 10 MG, AS NEEDED
     Route: 048
  8. CYMBALTA [Concomitant]
  9. FOLIC ACID [Concomitant]
     Dosage: 1 MG, DAILY (1/D)
     Route: 048
  10. HYDROCODONE BITARTRATE AND ACETAMINOPHEN [Concomitant]
     Indication: PAIN
     Dosage: 1 D/F, AS NEEDED
     Route: 048
  11. LEVAQUIN [Concomitant]
     Dosage: 500 MG, DAILY (1/D)
     Route: 048
  12. LIPITOR [Concomitant]
     Dosage: 500 MG, DAILY (1/D)
     Route: 048
  13. METANX [Concomitant]
     Dosage: 1 D/F, DAILY (1/D)
     Route: 048
  14. MULTI-VITAMIN [Concomitant]
     Dosage: 1 D/F, DAILY (1/D)
     Route: 048
  15. TARCEVA [Concomitant]
     Dosage: 150 MG, DAILY (1/D)
     Route: 048
  16. TRICOR [Concomitant]
     Dosage: 145 MG, DAILY (1/D)
     Route: 048
  17. VITAMIN B-12 [Concomitant]
     Dosage: 1000 UG, UNK
     Route: 030

REACTIONS (1)
  - CEREBRAL INFARCTION [None]
